FAERS Safety Report 12641789 (Version 1)
Quarter: 2016Q3

REPORT INFORMATION
  Report Type: Report from Study
  Country: CA (occurrence: CA)
  Receive Date: 20160810
  Receipt Date: 20160810
  Transmission Date: 20161109
  Serious: Yes (Other)
  Sender: FDA-Public Use
  Company Number: CA-JNJFOC-20160806817

PATIENT
  Age: 33 Year
  Sex: Female
  Weight: 43 kg

DRUGS (3)
  1. REMICADE [Suspect]
     Active Substance: INFLIXIMAB
     Indication: CROHN^S DISEASE
     Route: 042
     Dates: start: 20160111
  2. IMURAN [Concomitant]
     Active Substance: AZATHIOPRINE
     Dosage: 100 MG AND 150 MG ON ALTERNATE DAY
     Route: 048
  3. REMICADE [Suspect]
     Active Substance: INFLIXIMAB
     Indication: CROHN^S DISEASE
     Route: 042
     Dates: start: 20160806

REACTIONS (1)
  - Intestinal operation [Recovering/Resolving]

NARRATIVE: CASE EVENT DATE: 20160616
